FAERS Safety Report 21884436 (Version 3)
Quarter: 2023Q1

REPORT INFORMATION
  Report Type: Spontaneous
  Country: US (occurrence: US)
  Receive Date: 20230119
  Receipt Date: 20230210
  Transmission Date: 20230418
  Serious: Yes (Disabling, Other)
  Sender: FDA-Public Use
  Company Number: US-PFIZER INC-202300024525

PATIENT
  Age: 69 Year
  Sex: Female
  Weight: 65.76 kg

DRUGS (5)
  1. ALDACTONE [Suspect]
     Active Substance: SPIRONOLACTONE
     Indication: Adrenogenital syndrome
     Dosage: 100 MG, 2X/DAY
     Route: 048
  2. ALDACTONE [Suspect]
     Active Substance: SPIRONOLACTONE
     Dosage: 100 MG, DAILY, IN THE MORNING
     Route: 048
     Dates: start: 20230110
  3. ALDACTONE [Suspect]
     Active Substance: SPIRONOLACTONE
     Dosage: 50 MG, DAILY
     Route: 048
     Dates: start: 20230124
  4. SYNTHROID [Concomitant]
     Active Substance: LEVOTHYROXINE SODIUM
     Indication: Hypothyroidism
     Dosage: 50 UG, 1X/DAY (50 MCG QAM)
     Dates: start: 1994
  5. ACYCLOVIR [Concomitant]
     Active Substance: ACYCLOVIR
     Indication: Herpes simplex
     Dosage: UNK (200 MG 3X Q WEEK, MONDAY/WEDNESDAY/FRIDAY AM 27JAN2023)
     Dates: start: 1985

REACTIONS (11)
  - Flushing [Recovering/Resolving]
  - Palpitations [Recovering/Resolving]
  - Hyperhidrosis [Recovering/Resolving]
  - Polyuria [Recovering/Resolving]
  - Insomnia [Unknown]
  - Intentional dose omission [Unknown]
  - Insomnia [Unknown]
  - Pseudoaldosteronism [Unknown]
  - Cortisol increased [Unknown]
  - Blood thyroid stimulating hormone increased [Unknown]
  - Tri-iodothyronine decreased [Unknown]
